FAERS Safety Report 22337116 (Version 1)
Quarter: 2023Q2

REPORT INFORMATION
  Report Type: Spontaneous
  Country: US (occurrence: US)
  Receive Date: 20230518
  Receipt Date: 20230518
  Transmission Date: 20230722
  Serious: No
  Sender: FDA-Public Use
  Company Number: US-G1 THERAPEUTICS-2023G1US0000072

PATIENT

DRUGS (1)
  1. COSELA [Suspect]
     Active Substance: TRILACICLIB DIHYDROCHLORIDE
     Indication: Product used for unknown indication
     Dosage: UNK
     Route: 041

REACTIONS (3)
  - Dyspnoea [Recovered/Resolved]
  - Injection site irritation [Recovered/Resolved]
  - Rash [Recovered/Resolved]
